FAERS Safety Report 24814570 (Version 1)
Quarter: 2025Q1

REPORT INFORMATION
  Report Type: Spontaneous
  Country: US (occurrence: US)
  Receive Date: 20250107
  Receipt Date: 20250107
  Transmission Date: 20250409
  Serious: Yes (Other)
  Sender: AMGEN
  Company Number: US-AMGEN-USASP2024257034

PATIENT
  Age: 48 Year
  Sex: Male

DRUGS (1)
  1. BEVACIZUMAB [Suspect]
     Active Substance: BEVACIZUMAB
     Indication: Angiosarcoma
     Route: 065

REACTIONS (4)
  - Ascites [Unknown]
  - Angiosarcoma [Unknown]
  - Off label use [Unknown]
  - Therapy non-responder [Unknown]
